FAERS Safety Report 5626643-5 (Version None)
Quarter: 2008Q1

REPORT INFORMATION
  Report Type: 
  Country: None (occurrence: None)
  Receive Date: 20080214
  Receipt Date: 20080211
  Transmission Date: 20080703
  Serious: Yes (Other)
  Sender: FDA-Public Use
  Company Number: US-BOEHRINGER INGELHEIM GMBH, GERMANY-2007-BP-18863BP

PATIENT
  Sex: Female

DRUGS (8)
  1. FLOMAX [Suspect]
     Indication: DYSURIA
     Route: 048
     Dates: start: 20070622, end: 20070701
  2. FLOMAX [Suspect]
     Indication: CYSTITIS
  3. FLOMAX [Suspect]
     Indication: BLADDER NECK OBSTRUCTION
  4. FLOMAX [Suspect]
     Indication: CYSTOPEXY
  5. COZAAR [Concomitant]
     Indication: HYPERTENSION
  6. CRESTOR [Concomitant]
     Indication: BLOOD CHOLESTEROL INCREASED
  7. ENABLEX [Concomitant]
     Dates: start: 20061020
  8. VERAPAMIL [Concomitant]

REACTIONS (3)
  - DIZZINESS [None]
  - LOSS OF CONSCIOUSNESS [None]
  - SYNCOPE [None]
